FAERS Safety Report 5579103-4 (Version None)
Quarter: 2007Q4

REPORT INFORMATION
  Report Type: 
  Country: None (occurrence: None)
  Receive Date: 20071228
  Receipt Date: 20071228
  Transmission Date: 20080405
  Serious: No
  Sender: FDA-Public Use
  Company Number: None

PATIENT
  Sex: Female
  Weight: 86.1834 kg

DRUGS (1)
  1. CEREFOLIN [Suspect]
     Indication: VITAMIN B12 DEFICIENCY
     Dosage: TAKE TABLET BY MOUTH EVERY OTHER DAY PO
     Route: 048
     Dates: start: 20070825, end: 20071123

REACTIONS (4)
  - GAIT DISTURBANCE [None]
  - MONOPLEGIA [None]
  - MOVEMENT DISORDER [None]
  - NEUROPATHY [None]
